FAERS Safety Report 4608761-3 (Version None)
Quarter: 2005Q1

REPORT INFORMATION
  Report Type: 
  Country: None (occurrence: None)
  Receive Date: 20050315
  Receipt Date: 20050303
  Transmission Date: 20050727
  Serious: Yes (Hospitalization)
  Sender: FDA-Public Use
  Company Number: FR-SANOFI-SYNTHELABO-A02200500571

PATIENT
  Age: 32 Year
  Sex: Female
  Weight: 41 kg

DRUGS (2)
  1. PLAQUENIL [Suspect]
     Indication: CUTANEOUS LUPUS ERYTHEMATOSUS
     Route: 048
     Dates: start: 19990415, end: 20041005
  2. CORTANCYL [Concomitant]
     Dosage: UNK
     Route: 048

REACTIONS (3)
  - ATRIOVENTRICULAR BLOCK [None]
  - ATRIOVENTRICULAR BLOCK COMPLETE [None]
  - LOSS OF CONSCIOUSNESS [None]
